FAERS Safety Report 15582412 (Version 1)
Quarter: 2018Q4

REPORT INFORMATION
  Report Type: Report from Study
  Country: US (occurrence: US)
  Receive Date: 20181102
  Receipt Date: 20181102
  Transmission Date: 20190205
  Serious: Yes (Other)
  Sender: FDA-Public Use
  Company Number: US-AMGEN-USASL2018121004

PATIENT
  Age: 55 Year
  Sex: Male
  Weight: 122.36 kg

DRUGS (12)
  1. REPATHA [Suspect]
     Active Substance: EVOLOCUMAB
     Indication: LIPIDS INCREASED
  2. APPLE CIDER VINEGAR [Concomitant]
     Active Substance: APPLE CIDER VINEGAR
     Dosage: UNK UNK, QD
     Route: 048
     Dates: start: 20180226
  3. ASPIRIN. [Concomitant]
     Active Substance: ASPIRIN
     Dosage: 81 MG, QD
     Route: 048
     Dates: start: 20180117
  4. FUROSEMIDE. [Concomitant]
     Active Substance: FUROSEMIDE
     Dosage: 40 MG, QD
     Route: 048
     Dates: start: 20180601
  5. REPATHA [Suspect]
     Active Substance: EVOLOCUMAB
     Indication: HYPERCHOLESTEROLAEMIA
     Dosage: 140 MG, Q2WK
     Route: 058
     Dates: start: 20180821
  6. BENADRYL [Concomitant]
     Active Substance: DIPHENHYDRAMINE HYDROCHLORIDE
     Indication: SINUS HEADACHE
  7. NITROGLYCERIN. [Concomitant]
     Active Substance: NITROGLYCERIN
     Dosage: 0.4 MG, Q5MIN
     Route: 060
     Dates: start: 20180124
  8. ZETIA [Suspect]
     Active Substance: EZETIMIBE
     Indication: LIPIDS INCREASED
     Dosage: 10 MG, QD
     Route: 048
     Dates: start: 20180713, end: 20180910
  9. IMDUR [Concomitant]
     Active Substance: ISOSORBIDE MONONITRATE
     Dosage: 30 MG, QD
     Route: 048
     Dates: start: 20180226
  10. BENADRYL [Concomitant]
     Active Substance: DIPHENHYDRAMINE HYDROCHLORIDE
     Indication: HYPERSENSITIVITY
     Dosage: 1 DF, AS NECESSARY
     Route: 048
     Dates: start: 20180226
  11. EFFIENT [Concomitant]
     Active Substance: PRASUGREL HYDROCHLORIDE
     Dosage: 10 MG, QD
     Route: 048
     Dates: start: 20180529
  12. TOPROL XL [Concomitant]
     Active Substance: METOPROLOL SUCCINATE
     Dosage: 25 MG, QD
     Route: 048
     Dates: start: 20180529

REACTIONS (15)
  - Pain in extremity [Recovering/Resolving]
  - Pain [Recovering/Resolving]
  - Constipation [Recovering/Resolving]
  - Bladder pain [Unknown]
  - Dysuria [Recovering/Resolving]
  - Tenderness [Unknown]
  - Headache [Not Recovered/Not Resolved]
  - Haematochezia [Not Recovered/Not Resolved]
  - Back pain [Recovering/Resolving]
  - Hypoaesthesia [Unknown]
  - Gait disturbance [Recovering/Resolving]
  - Paraesthesia [Not Recovered/Not Resolved]
  - Feeling abnormal [Unknown]
  - Asthenia [Unknown]
  - Hyperaesthesia [Unknown]

NARRATIVE: CASE EVENT DATE: 2018
